FAERS Safety Report 8947525 (Version 2)
Quarter: 2012Q4

REPORT INFORMATION
  Report Type: Report from Study
  Country: CA (occurrence: CA)
  Receive Date: 20121205
  Receipt Date: 20121221
  Transmission Date: 20130627
  Serious: Yes (Death)
  Sender: FDA-Public Use
  Company Number: CA-ROCHE-1056146

PATIENT
  Age: 77 None
  Sex: Male
  Weight: 74 kg

DRUGS (9)
  1. VEMURAFENIB [Suspect]
     Indication: METASTATIC MALIGNANT MELANOMA
     Route: 048
     Dates: start: 20120309
  2. VEMURAFENIB [Suspect]
     Route: 048
     Dates: start: 201203
  3. AMLODIPINE [Concomitant]
  4. BISOPROLOL [Concomitant]
  5. HYDROCHLOROTHIAZIDE [Concomitant]
  6. RAMIPRIL [Concomitant]
  7. SIMVASTATIN [Concomitant]
  8. FLOMAX [Concomitant]
  9. OXYCONTIN [Concomitant]

REACTIONS (2)
  - Cystitis [Recovered/Resolved]
  - Disease progression [Fatal]
